FAERS Safety Report 19859923 (Version 2)
Quarter: 2021Q4

REPORT INFORMATION
  Report Type: Spontaneous
  Country: JP (occurrence: JP)
  Receive Date: 20210921
  Receipt Date: 20211007
  Transmission Date: 20220303
  Serious: Yes (Hospitalization, Other)
  Sender: FDA-Public Use
  Company Number: JP-NOVOPROD-846811

PATIENT
  Age: 59 Year
  Sex: Female
  Weight: 72 kg

DRUGS (12)
  1. RYBELSUS [Suspect]
     Active Substance: SEMAGLUTIDE
     Indication: Type 2 diabetes mellitus
     Dosage: 3MG
     Route: 048
     Dates: start: 20210304
  2. RYBELSUS [Suspect]
     Active Substance: SEMAGLUTIDE
     Dosage: 14MG
     Route: 048
     Dates: start: 20210502
  3. RYBELSUS [Suspect]
     Active Substance: SEMAGLUTIDE
     Dosage: 7MG
     Route: 048
     Dates: start: 20210408
  4. METGLUCO [Concomitant]
     Active Substance: METFORMIN HYDROCHLORIDE
     Indication: Type 2 diabetes mellitus
     Dosage: 1500 MG, QD
     Route: 048
     Dates: start: 20111103
  5. IPRAGLIFLOZIN L-PROLINE [Concomitant]
     Active Substance: IPRAGLIFLOZIN L-PROLINE
     Indication: Type 2 diabetes mellitus
     Dosage: 25 MG, QD
     Route: 048
     Dates: start: 20150528
  6. REPAGLINIDE [Concomitant]
     Active Substance: REPAGLINIDE
     Indication: Type 2 diabetes mellitus
     Dosage: 1.5 MG, QD
     Route: 048
     Dates: start: 20130709
  7. ACTOS [Concomitant]
     Active Substance: PIOGLITAZONE HYDROCHLORIDE
     Indication: Type 2 diabetes mellitus
     Dosage: 7.5 MG, QD
     Route: 048
     Dates: start: 20130607
  8. MIGLITOL [Concomitant]
     Active Substance: MIGLITOL
     Indication: Type 2 diabetes mellitus
     Dosage: 75 MG, QD
     Route: 048
     Dates: start: 20131228
  9. TELTHIA [Concomitant]
     Indication: Hypertension
     Dosage: 1 DF/DAY
     Route: 048
     Dates: start: 20100916
  10. LASIX [Concomitant]
     Active Substance: FUROSEMIDE
     Indication: Oedema
     Dosage: 10 MG, QD
     Route: 048
     Dates: start: 20151027
  11. CILOSTAZOL [Concomitant]
     Active Substance: CILOSTAZOL
     Indication: Peripheral artery stenosis
  12. CILOSTAZOL [Concomitant]
     Active Substance: CILOSTAZOL
     Indication: Carotid artery stenosis
     Dosage: 200 MG, QD
     Route: 048
     Dates: start: 20140430

REACTIONS (2)
  - Cholelithiasis [Recovering/Resolving]
  - Malaise [Unknown]

NARRATIVE: CASE EVENT DATE: 20210906
